FAERS Safety Report 8851084 (Version 1)
Quarter: 2012Q4

REPORT INFORMATION
  Report Type: 
  Country: MX (occurrence: MX)
  Receive Date: 20121019
  Receipt Date: 20121019
  Transmission Date: 20130627
  Serious: Yes (Death, Hospitalization)
  Sender: FDA-Public Use
  Company Number: MX-SANOFI-AVENTIS-2012SA075171

PATIENT
  Age: 76 Year
  Sex: Male

DRUGS (4)
  1. AMARYL [Suspect]
     Indication: TYPE 2 DIABETES MELLITUS
     Route: 048
     Dates: start: 2008, end: 20120923
  2. LANTUS [Suspect]
     Indication: TYPE 2 DIABETES MELLITUS
     Route: 058
     Dates: start: 2008, end: 20120923
  3. ADALAT CC [Concomitant]
     Indication: HYPERTENSION ARTERIAL
     Route: 048
     Dates: end: 20120923
  4. ASA [Concomitant]
     Indication: CARDIAC DISORDER PROPHYLAXIS
     Route: 048
     Dates: end: 20120923

REACTIONS (1)
  - Cerebrovascular accident [Fatal]
